FAERS Safety Report 10021553 (Version 2)
Quarter: 2014Q2

REPORT INFORMATION
  Report Type: Spontaneous
  Country: US (occurrence: US)
  Receive Date: 20140319
  Receipt Date: 20140411
  Transmission Date: 20141212
  Serious: Yes (Other)
  Sender: FDA-Public Use
  Company Number: US-TEVA-469305USA

PATIENT
  Age: 33 Year
  Sex: Female
  Weight: 70.37 kg

DRUGS (1)
  1. PARAGARD 380A [Suspect]
     Indication: CONTRACEPTION
     Route: 015
     Dates: start: 20130614

REACTIONS (3)
  - Device dislocation [Not Recovered/Not Resolved]
  - Menorrhagia [Recovering/Resolving]
  - Metrorrhagia [Recovering/Resolving]
